FAERS Safety Report 9701544 (Version 3)
Quarter: 2013Q4

REPORT INFORMATION
  Report Type: Spontaneous
  Country: US (occurrence: None)
  Receive Date: 20131119
  Receipt Date: 20131226
  Transmission Date: 20140711
  Serious: Yes (Other)
  Sender: FDA-Public Use
  Company Number: ADR-2013-02102

PATIENT
  Age: 66 Year
  Sex: Female

DRUGS (2)
  1. BACLOFEN (1000 MCG/ML) [Suspect]
     Indication: MUSCLE SPASTICITY
     Dosage: SEE B5
  2. CLONIDINE (150 UG/ML) [Suspect]
     Dosage: SEE B5

REACTIONS (13)
  - Fall [None]
  - Road traffic accident [None]
  - Local swelling [None]
  - Contusion [None]
  - Device issue [None]
  - Device leakage [None]
  - Implant site swelling [None]
  - Aspiration [None]
  - Therapeutic procedure [None]
  - Pruritus [None]
  - Muscle spasticity [None]
  - Therapy change [None]
  - Dysphagia [None]
